FAERS Safety Report 4842777-7 (Version None)
Quarter: 2005Q4

REPORT INFORMATION
  Report Type: 
  Country: None (occurrence: None)
  Receive Date: 20051128
  Receipt Date: 20051111
  Transmission Date: 20060501
  Serious: Yes (Death)
  Sender: FDA-Public Use
  Company Number: CLOF-10135

PATIENT
  Age: 73 Year
  Sex: Male

DRUGS (13)
  1. CLOFARABINE [Suspect]
     Indication: ACUTE MYELOID LEUKAEMIA
     Dosage: 75 MG QD X 5; IV
     Route: 042
     Dates: start: 20050729, end: 20050802
  2. CYTARABINE [Suspect]
     Indication: ACUTE MYELOID LEUKAEMIA
     Dosage: 50 MG QD; SC
     Route: 058
     Dates: start: 20050729, end: 20050811
  3. CHLORHEXIDINE [Concomitant]
  4. CLOTRIMAZOLE [Concomitant]
  5. MORPHINE [Concomitant]
  6. PANTOPRAZOLE [Concomitant]
  7. ACYCLOVIR [Concomitant]
  8. CASPOFUNGIN [Concomitant]
  9. METOPROLOL [Concomitant]
  10. CEFEPIME [Concomitant]
  11. PHENYTOIN [Concomitant]
  12. VORICONAZOLE [Concomitant]
  13. METHYLPREDNISOLONE [Concomitant]

REACTIONS (2)
  - INFECTION [None]
  - MULTI-ORGAN FAILURE [None]
